FAERS Safety Report 15547846 (Version 1)
Quarter: 2018Q4

REPORT INFORMATION
  Report Type: Spontaneous
  Country: RU (occurrence: RU)
  Receive Date: 20181024
  Receipt Date: 20181024
  Transmission Date: 20190205
  Serious: Yes (Other)
  Sender: FDA-Public Use
  Company Number: RU-BAYER-2018-194712

PATIENT
  Age: 38 Year
  Sex: Female

DRUGS (1)
  1. MIRENA [Suspect]
     Active Substance: LEVONORGESTREL
     Dosage: 20 MCG/24HR, CONT
     Route: 015
     Dates: start: 201709, end: 201805

REACTIONS (4)
  - Adenocarcinoma of the cervix [None]
  - Uterine leiomyoma [None]
  - Metastases to vagina [None]
  - Menstrual disorder [None]
